FAERS Safety Report 12811026 (Version 1)
Quarter: 2016Q4

REPORT INFORMATION
  Report Type: Spontaneous
  Country: US (occurrence: US)
  Receive Date: 20161005
  Receipt Date: 20161005
  Transmission Date: 20170207
  Serious: Yes (Other)
  Sender: FDA-Public Use
  Company Number: US-GLAXOSMITHKLINE-US2016GSK034897

PATIENT
  Sex: Female

DRUGS (9)
  1. ZITHROMAX [Suspect]
     Active Substance: AZITHROMYCIN DIHYDRATE
  2. RELAFEN [Suspect]
     Active Substance: NABUMETONE
  3. CEFTIN [Suspect]
     Active Substance: CEFUROXIME AXETIL
  4. NEURONTIN [Suspect]
     Active Substance: GABAPENTIN
  5. MORPHINE [Suspect]
     Active Substance: MORPHINE
  6. TOPAMAX [Suspect]
     Active Substance: TOPIRAMATE
  7. MACROBID [Suspect]
     Active Substance: NITROFURANTOIN\NITROFURANTOIN MONOHYDRATE
  8. CIPROFLOXACIN. [Suspect]
     Active Substance: CIPROFLOXACIN
  9. LOVAZA [Concomitant]
     Active Substance: OMEGA-3-ACID ETHYL ESTERS

REACTIONS (8)
  - Respiratory arrest [Unknown]
  - Urticaria [Unknown]
  - Drug hypersensitivity [Unknown]
  - Amnesia [Unknown]
  - Cardiac disorder [Unknown]
  - Diarrhoea [Unknown]
  - Renal impairment [Unknown]
  - Vomiting [Unknown]
